FAERS Safety Report 25786003 (Version 1)
Quarter: 2025Q3

REPORT INFORMATION
  Report Type: Spontaneous
  Country: US (occurrence: US)
  Receive Date: 20250910
  Receipt Date: 20250910
  Transmission Date: 20251021
  Serious: Yes (Other)
  Sender: MALLINCKRODT
  Company Number: US-MALLINCKRODT-MNK202505533

PATIENT
  Age: 37 Year
  Sex: Female

DRUGS (8)
  1. NITRIC OXIDE [Suspect]
     Active Substance: NITRIC OXIDE
     Indication: Product used for unknown indication
     Route: 055
  2. METHERGINE [Concomitant]
     Active Substance: METHYLERGONOVINE MALEATE
  3. CARBOPROST [Concomitant]
     Active Substance: CARBOPROST
  4. OXYTOCIN [Concomitant]
     Active Substance: OXYTOCIN
  5. TRANEXAMIC ACID [Concomitant]
     Active Substance: TRANEXAMIC ACID
  6. EPINEPHRINE [Concomitant]
     Active Substance: EPINEPHRINE
  7. NOREPINEPHRINE [Concomitant]
     Active Substance: NOREPINEPHRINE
  8. VASOPRESSIN [Concomitant]
     Active Substance: VASOPRESSIN

REACTIONS (2)
  - Hypovolaemia [Unknown]
  - Product use issue [Unknown]
